FAERS Safety Report 5143200-8 (Version None)
Quarter: 2006Q4

REPORT INFORMATION
  Report Type: 
  Country: None (occurrence: None)
  Receive Date: 20061030
  Receipt Date: 20061016
  Transmission Date: 20070319
  Serious: Yes (Other)
  Sender: FDA-Public Use
  Company Number: 2006097588

PATIENT
  Sex: Male

DRUGS (10)
  1. LYRICA [Suspect]
     Indication: NEURALGIA
     Dosage: 150 MG (75 MG, 2 IN 1 D)
     Dates: start: 20060728
  2. TRAMADOL HCL [Suspect]
     Indication: DRUG USE FOR UNKNOWN INDICATION
  3. GLUCOR (ACARBOSE) [Concomitant]
  4. NOVONORM (REPAGLINIDE) [Concomitant]
  5. ACTOS [Concomitant]
  6. GLUCOPHAGE [Concomitant]
  7. XATRAL (ALFUZOSIN) [Concomitant]
  8. ERCEFURYL (NIFUROXAZIDE) [Concomitant]
  9. SACCHAROMYCES BOULARDII (SACCHAROMYCES BOULARDII) [Concomitant]
  10. MULTI-VITAMINS [Concomitant]

REACTIONS (10)
  - AMNESIA [None]
  - ANGIOPATHY [None]
  - CONFUSIONAL STATE [None]
  - DISORIENTATION [None]
  - INCOHERENT [None]
  - ISCHAEMIA [None]
  - PERIPHERAL COLDNESS [None]
  - SPEECH DISORDER [None]
  - THROMBECTOMY [None]
  - URINARY INCONTINENCE [None]
